FAERS Safety Report 4294037-3 (Version None)
Quarter: 2004Q1

REPORT INFORMATION
  Report Type: 
  Country: None (occurrence: None)
  Receive Date: 20040211
  Receipt Date: 20040127
  Transmission Date: 20041129
  Serious: Yes (Hospitalization)
  Sender: FDA-Public Use
  Company Number: FABR-10447

PATIENT
  Age: 49 Year
  Sex: Male
  Weight: 53.2 kg

DRUGS (3)
  1. FABRAZYME [Suspect]
     Indication: FABRY'S DISEASE
     Dosage: 70 MG Q2WKS IV
     Route: 042
     Dates: start: 20010802
  2. AMIODARONE HCL [Concomitant]
  3. THEOPHYLLINE [Concomitant]

REACTIONS (3)
  - ATRIAL FLUTTER [None]
  - BRADYCARDIA [None]
  - DIZZINESS [None]
